FAERS Safety Report 9352394 (Version 1)
Quarter: 2013Q2

REPORT INFORMATION
  Report Type: Spontaneous
  Country: US (occurrence: US)
  Receive Date: 20130617
  Receipt Date: 20130617
  Transmission Date: 20140414
  Serious: Yes (Hospitalization)
  Sender: FDA-Public Use
  Company Number: US-ELI_LILLY_AND_COMPANY-US201305006554

PATIENT
  Age: 44 Year
  Sex: Male
  Weight: 143.31 kg

DRUGS (3)
  1. EFFIENT [Suspect]
     Indication: CORONARY ARTERY DISEASE
     Dosage: 10 MG, QD
     Route: 048
     Dates: start: 20111213
  2. LOPRESSOR [Concomitant]
  3. STATIN                             /00084401/ [Concomitant]

REACTIONS (2)
  - Dyspnoea [Unknown]
  - Pneumonia bacterial [Unknown]
